FAERS Safety Report 7620197-X (Version None)
Quarter: 2011Q3

REPORT INFORMATION
  Report Type: 
  Country: None (occurrence: None)
  Receive Date: 20110719
  Receipt Date: 20110705
  Transmission Date: 20111222
  Serious: Yes (Other)
  Sender: FDA-Public Use
  Company Number: PHHY2011US59966

PATIENT
  Sex: Female

DRUGS (5)
  1. DILANTIN [Concomitant]
     Dosage: UNK UKN, UNK
  2. LIPOZID [Concomitant]
     Dosage: UNK UKN, UNK
  3. DIOVAN HCT [Suspect]
     Dosage: 160 MG OF VALSARTAN AND 25 MG OF HYDROCHLOROTHIAZIDE, QD
  4. METFORMIN HCL [Concomitant]
     Dosage: UNK UKN, UNK
  5. ZOCOR [Concomitant]
     Dosage: UNK UKN, UNK

REACTIONS (3)
  - CHEST PAIN [None]
  - MYOCARDIAL INFARCTION [None]
  - BACK PAIN [None]
